FAERS Safety Report 8620025-X (Version None)
Quarter: 2012Q3

REPORT INFORMATION
  Report Type: 
  Country: None (occurrence: None)
  Receive Date: 20120824
  Receipt Date: 20120821
  Transmission Date: 20120928
  Serious: Yes (Death, Other)
  Sender: FDA-Public Use
  Company Number: PHEH2012US001901

PATIENT
  Sex: Female

DRUGS (2)
  1. GILENYA [Suspect]
     Indication: RELAPSING-REMITTING MULTIPLE SCLEROSIS
     Dosage: 0.5 MG, QD
     Route: 048
     Dates: start: 20110201
  2. GILENYA [Suspect]
     Indication: MULTIPLE SCLEROSIS

REACTIONS (5)
  - PNEUMONIA [None]
  - URINARY TRACT INFECTION [None]
  - DEATH [None]
  - MULTIPLE SCLEROSIS RELAPSE [None]
  - CONVULSION [None]
